FAERS Safety Report 8866415 (Version 1)
Quarter: 2012Q4

REPORT INFORMATION
  Report Type: 
  Country: US (occurrence: US)
  Receive Date: 20121025
  Receipt Date: 20121025
  Transmission Date: 20130627
  Serious: Yes (Hospitalization)
  Sender: FDA-Public Use
  Company Number: US-ABBOTT-12P-163-0997638-00

PATIENT
  Sex: Male
  Weight: 74.91 kg

DRUGS (3)
  1. HUMIRA [Suspect]
     Indication: CROHN^S DISEASE
     Dates: start: 201201, end: 201207
  2. IMIPRAMINE [Concomitant]
     Indication: PAIN
  3. IRON [Concomitant]
     Indication: IRON DEFICIENCY

REACTIONS (3)
  - Intestinal obstruction [Recovered/Resolved]
  - Crohn^s disease [Recovered/Resolved]
  - Nephrolithiasis [Recovered/Resolved]
